FAERS Safety Report 13497177 (Version 1)
Quarter: 2017Q2

REPORT INFORMATION
  Report Type: Spontaneous
  Country: PL (occurrence: PL)
  Receive Date: 20170428
  Receipt Date: 20170428
  Transmission Date: 20170830
  Serious: Yes (Hospitalization, Other)
  Sender: FDA-Public Use
  Company Number: PL-BAYER-2017-076220

PATIENT
  Age: 52 Year
  Sex: Male

DRUGS (1)
  1. ACETYLSALICYLIC ACID (} 100 MG) [Suspect]
     Active Substance: ASPIRIN
     Dosage: 300 MG, ONCE

REACTIONS (5)
  - Coronary artery thrombosis [None]
  - Drug effect incomplete [None]
  - Intracardiac thrombus [None]
  - Ventricular hypokinesia [None]
  - Myocardial necrosis [None]
